FAERS Safety Report 8371245-3 (Version None)
Quarter: 2012Q2

REPORT INFORMATION
  Report Type: 
  Country: None (occurrence: None)
  Receive Date: 20120518
  Receipt Date: 20120508
  Transmission Date: 20120825
  Serious: Yes (Life-Threatening)
  Sender: FDA-Public Use
  Company Number: MX-AMGEN-MEXSP2012029715

PATIENT
  Age: 50 Year
  Sex: Female

DRUGS (3)
  1. CELEBREX [Concomitant]
     Dosage: UNK
  2. ENBREL [Suspect]
     Indication: PRODUCT USED FOR UNKNOWN INDICATION
     Dosage: UNK
     Route: 058
  3. METHOTREXATE [Concomitant]
     Dosage: 10 MG, UNK
     Route: 048

REACTIONS (1)
  - MYOCARDIAL INFARCTION [None]
